FAERS Safety Report 9006289 (Version 1)
Quarter: 2013Q1

REPORT INFORMATION
  Report Type: Spontaneous
  Country: US (occurrence: US)
  Receive Date: 20130110
  Receipt Date: 20130110
  Transmission Date: 20140127
  Serious: Yes (Death, Other)
  Sender: FDA-Public Use
  Company Number: US-009507513-0909USA03209

PATIENT
  Age: 77 Year
  Sex: Male
  Weight: 69.4 kg

DRUGS (1)
  1. SINGULAIR [Suspect]
     Indication: ASTHMA
     Route: 048

REACTIONS (2)
  - Completed suicide [Fatal]
  - Lung neoplasm malignant [Fatal]
